FAERS Safety Report 14462088 (Version 4)
Quarter: 2018Q2

REPORT INFORMATION
  Report Type: Spontaneous
  Country: CZ (occurrence: CZ)
  Receive Date: 20180130
  Receipt Date: 20180517
  Transmission Date: 20180711
  Serious: Yes (Other)
  Sender: FDA-Public Use
  Company Number: CZ-BAUSCH-BL-2018-002068

PATIENT
  Age: 68 Year
  Sex: Male

DRUGS (6)
  1. OMEPRAZOL [Suspect]
     Active Substance: OMEPRAZOLE
     Indication: PRODUCT USED FOR UNKNOWN INDICATION
     Dosage: UNK UNK, BID
     Route: 065
     Dates: start: 20170901
  2. DICLOFENAC [Suspect]
     Active Substance: DICLOFENAC
     Indication: PRODUCT USED FOR UNKNOWN INDICATION
     Dosage: 12 HOURS
     Route: 065
     Dates: start: 201709
  3. SORVASTA [Suspect]
     Active Substance: ROSUVASTATIN CALCIUM
     Indication: TYPE V HYPERLIPIDAEMIA
     Dosage: DAILY
     Route: 065
     Dates: start: 20170822
  4. OMEPRAZOL AZU [Suspect]
     Active Substance: OMEPRAZOLE
     Indication: PRODUCT USED FOR UNKNOWN INDICATION
     Route: 065
  5. DICLOFENAC [Suspect]
     Active Substance: DICLOFENAC
     Dosage: 2 UNK, QD (UNK UNK, BID)
     Route: 065
     Dates: start: 20170901
  6. PREDNISON [Suspect]
     Active Substance: PREDNISONE
     Indication: PRODUCT USED FOR UNKNOWN INDICATION
     Dosage: TWICE IN THE MORNING
     Route: 065
     Dates: start: 20170921

REACTIONS (1)
  - Haematospermia [Unknown]
